FAERS Safety Report 11695315 (Version 3)
Quarter: 2015Q4

REPORT INFORMATION
  Report Type: Spontaneous
  Country: DK (occurrence: DK)
  Receive Date: 20151103
  Receipt Date: 20151124
  Transmission Date: 20160304
  Serious: Yes (Death, Other)
  Sender: FDA-Public Use
  Company Number: DK-ROCHE-1655066

PATIENT
  Age: 46 Year
  Sex: Male
  Weight: 85 kg

DRUGS (1)
  1. ERIVEDGE [Suspect]
     Active Substance: VISMODEGIB
     Indication: BASOSQUAMOUS CARCINOMA
     Dosage: STRENGTH: 150
     Route: 048
     Dates: start: 20150420, end: 20150903

REACTIONS (7)
  - Ageusia [Unknown]
  - Weight decreased [Unknown]
  - Muscle spasms [Unknown]
  - Aspartate aminotransferase increased [Unknown]
  - Trismus [Unknown]
  - Embolism [Fatal]
  - White blood cell count increased [Unknown]

NARRATIVE: CASE EVENT DATE: 20150825
